FAERS Safety Report 21347345 (Version 1)
Quarter: 2022Q3

REPORT INFORMATION
  Report Type: Report from Study
  Country: FR (occurrence: FR)
  Receive Date: 20220919
  Receipt Date: 20220919
  Transmission Date: 20221027
  Serious: Yes (Death)
  Sender: FDA-Public Use
  Company Number: FR-NOVARTISPH-NVSC2021FR269593

PATIENT
  Sex: Female

DRUGS (1)
  1. CAPMATINIB [Suspect]
     Active Substance: CAPMATINIB
     Indication: Non-small cell lung cancer
     Dosage: 2X400 MG, QD
     Route: 048
     Dates: start: 20210201

REACTIONS (2)
  - Death [Fatal]
  - Oedema peripheral [Unknown]

NARRATIVE: CASE EVENT DATE: 20220115
